FAERS Safety Report 6718006-6 (Version None)
Quarter: 2010Q2

REPORT INFORMATION
  Report Type: 
  Country: None (occurrence: None)
  Receive Date: 20100510
  Receipt Date: 20100506
  Transmission Date: 20101027
  Serious: Yes (Death, Hospitalization)
  Sender: FDA-Public Use
  Company Number: PHHY2010US26936

PATIENT
  Sex: Male
  Weight: 58.05 kg

DRUGS (6)
  1. EXJADE [Suspect]
     Indication: MYELODYSPLASTIC SYNDROME
     Dosage: 250 MG DAILY
     Route: 048
     Dates: start: 20091222, end: 20100308
  2. EXJADE [Suspect]
     Indication: IRON OVERLOAD
  3. NEUPOGEN [Concomitant]
     Dosage: 300 MG, BIW
     Dates: start: 20090627
  4. LASIX [Concomitant]
     Indication: HYPERTENSION
     Dosage: 40 G, BIW
  5. EXANDEL [Concomitant]
     Indication: HYPERTENSION
     Dosage: 25 MG DAILY
  6. ZOCOR [Concomitant]
     Indication: HYPERTENSION
     Dosage: UNK

REACTIONS (2)
  - FEBRILE NEUTROPENIA [None]
  - SEPSIS [None]
